FAERS Safety Report 5699896-5 (Version None)
Quarter: 2008Q2

REPORT INFORMATION
  Report Type: 
  Country: None (occurrence: None)
  Receive Date: 20080410
  Receipt Date: 20080407
  Transmission Date: 20081010
  Serious: Yes (Other)
  Sender: FDA-Public Use
  Company Number: JP-MERCK-0803USA02939

PATIENT
  Age: 12 Year

DRUGS (1)
  1. PEPCID [Suspect]
     Route: 048

REACTIONS (2)
  - AMIMIA [None]
  - ATONIC SEIZURES [None]
